FAERS Safety Report 6820925-7 (Version None)
Quarter: 2010Q3

REPORT INFORMATION
  Report Type: 
  Country: None (occurrence: None)
  Receive Date: 20100707
  Receipt Date: 20070904
  Transmission Date: 20110219
  Serious: Yes (Other)
  Sender: FDA-Public Use
  Company Number: US-PFIZER INC-2007073604

PATIENT
  Sex: Female
  Weight: 77.1 kg

DRUGS (8)
  1. SERTRALINE [Suspect]
     Indication: DEPRESSION
     Route: 048
  2. SERTRALINE [Suspect]
     Indication: OBSESSIVE-COMPULSIVE DISORDER
  3. SERTRALINE [Suspect]
     Route: 048
  4. SERTRALINE [Suspect]
  5. SERTRALINE [Suspect]
     Route: 048
  6. SERTRALINE [Suspect]
  7. XANAX [Concomitant]
     Indication: PANIC ATTACK
     Route: 048
  8. MORPHINE [Concomitant]
     Indication: PAIN
     Route: 048
     Dates: start: 20070701

REACTIONS (3)
  - HALLUCINATION, AUDITORY [None]
  - HALLUCINATION, VISUAL [None]
  - SUICIDAL IDEATION [None]
